FAERS Safety Report 8201612-X (Version None)
Quarter: 2012Q1

REPORT INFORMATION
  Report Type: 
  Country: None (occurrence: None)
  Receive Date: 20120312
  Receipt Date: 20120229
  Transmission Date: 20120608
  Serious: Yes (Hospitalization, Other)
  Sender: FDA-Public Use
  Company Number: CA-ROCHE-1044778

PATIENT
  Sex: Male

DRUGS (19)
  1. CALCIUM [Concomitant]
  2. LEVOTHYROXINE SODIUM [Concomitant]
  3. FOLIC ACID [Concomitant]
  4. ADVAIR DISKUS 100/50 [Concomitant]
     Dosage: 1 PUFF TWICE DAILY
     Route: 055
  5. DILTIAZEM [Concomitant]
  6. FUROSEMIDE [Concomitant]
  7. RITUXAN [Suspect]
     Indication: ANAEMIA HAEMOLYTIC AUTOIMMUNE
  8. NITROGLYCERIN [Concomitant]
     Route: 062
  9. PREDNISONE [Concomitant]
  10. NAPROXEN [Concomitant]
  11. DANAZOL [Suspect]
     Indication: PRODUCT USED FOR UNKNOWN INDICATION
  12. VITAMIN B-12 [Concomitant]
  13. ACTONEL [Concomitant]
  14. VENTOLIN [Concomitant]
     Dosage: 2 PUFFS 4 TIMES DAILY
     Route: 055
  15. PERINDOPRIL ERBUMINE [Concomitant]
  16. LIPITOR [Concomitant]
  17. RABEPRAZOLE SODIUM [Concomitant]
  18. ASPIRIN [Concomitant]
  19. SPIRIVA [Concomitant]

REACTIONS (1)
  - THROMBOCYTOPENIA [None]
